FAERS Safety Report 9530758 (Version 1)
Quarter: 2013Q3

REPORT INFORMATION
  Report Type: Spontaneous
  Country: US (occurrence: None)
  Receive Date: 20130916
  Receipt Date: 20130916
  Transmission Date: 20140515
  Serious: No
  Sender: FDA-Public Use
  Company Number: None

PATIENT
  Age: 72 Year
  Sex: Male
  Weight: 63.5 kg

DRUGS (6)
  1. ICLUSIG [Suspect]
     Indication: LEUKAEMIA
     Route: 048
     Dates: start: 20130912, end: 20130912
  2. ALDACTONE [Concomitant]
  3. ATENOLOL [Concomitant]
  4. CARVEDILOL 25 [Concomitant]
  5. CENTRUM SILVER [Concomitant]
  6. LASIX 20 [Concomitant]

REACTIONS (6)
  - Headache [None]
  - Chills [None]
  - Pyrexia [None]
  - Chest pain [None]
  - Urine odour abnormal [None]
  - Pain [None]
